FAERS Safety Report 6289225-0 (Version None)
Quarter: 2009Q3

REPORT INFORMATION
  Report Type: 
  Country: None (occurrence: None)
  Receive Date: 20090729
  Receipt Date: 20090729
  Transmission Date: 20100115
  Serious: No
  Sender: FDA-Public Use
  Company Number: None

PATIENT
  Sex: Female
  Weight: 81.6475 kg

DRUGS (1)
  1. METOCLOPRAMIDE [Suspect]
     Indication: IMPAIRED GASTRIC EMPTYING
     Dosage: 10MGS. 4 TIMES PER DAY PO 2 OR 3 YEARS NOT SURE YET
     Route: 048

REACTIONS (3)
  - FATIGUE [None]
  - MUSCLE TWITCHING [None]
  - TARDIVE DYSKINESIA [None]
